FAERS Safety Report 6034866-9 (Version None)
Quarter: 2009Q1

REPORT INFORMATION
  Report Type: 
  Country: None (occurrence: None)
  Receive Date: 20090112
  Receipt Date: 20090105
  Transmission Date: 20090719
  Serious: Yes (Death, Hospitalization)
  Sender: FDA-Public Use
  Company Number: ES-ELI_LILLY_AND_COMPANY-ES200901000658

PATIENT
  Age: 78 Year
  Sex: Female

DRUGS (6)
  1. FORTEO [Suspect]
     Indication: OSTEOPOROSIS
     Dosage: 20 UG, UNKNOWN
     Route: 058
     Dates: start: 20080701, end: 20081202
  2. FLUIMICIL [Concomitant]
     Indication: RESPIRATORY FAILURE
     Dosage: UNK, UNKNOWN
     Route: 065
  3. FLUTAMIDE [Concomitant]
     Indication: RESPIRATORY FAILURE
     Dosage: UNK, UNKNOWN
     Route: 065
  4. VENTOLIN [Concomitant]
     Indication: RESPIRATORY FAILURE
     Dosage: UNK, UNKNOWN
     Route: 065
  5. CALCIUM [Concomitant]
     Indication: OSTEOPOROSIS
     Dosage: UNK, UNKNOWN
     Route: 065
  6. OXYGEN [Concomitant]
     Dosage: UNK, UNKNOWN
     Route: 065

REACTIONS (2)
  - RESPIRATORY DISORDER [None]
  - RESPIRATORY PARALYSIS [None]
